FAERS Safety Report 10942256 (Version 1)
Quarter: 2015Q1

REPORT INFORMATION
  Report Type: Spontaneous
  Country: US (occurrence: None)
  Receive Date: 20150212
  Receipt Date: 20150212
  Transmission Date: 20150721
  Serious: No
  Sender: FDA-Public Use
  Company Number: TPA2011A02967

PATIENT
  Age: 79 Year
  Sex: Male
  Weight: 79.38 kg

DRUGS (5)
  1. LEVOXYL (LEVOTHYROXINE SODIUM) [Concomitant]
  2. DIURETICS [Concomitant]
     Active Substance: UNSPECIFIED INGREDIENT
  3. JANUVIA (DRUG USED IN DIABETES) [Concomitant]
  4. VITAMINS [Concomitant]
     Active Substance: VITAMINS
  5. ULORIC [Suspect]
     Active Substance: FEBUXOSTAT
     Indication: GOUT
     Dates: start: 20110531

REACTIONS (1)
  - Gout [None]

NARRATIVE: CASE EVENT DATE: 201106
